FAERS Safety Report 7818156-7 (Version None)
Quarter: 2011Q4

REPORT INFORMATION
  Report Type: 
  Country: None (occurrence: None)
  Receive Date: 20111017
  Receipt Date: 20111012
  Transmission Date: 20120403
  Serious: No
  Sender: FDA-Public Use
  Company Number: US-PFIZER INC-2011224370

PATIENT
  Sex: Male
  Weight: 74.83 kg

DRUGS (3)
  1. VICODIN [Suspect]
     Dosage: UNK
  2. PENICILLIN [Suspect]
     Dosage: UNK
  3. GLUCOPHAGE [Suspect]
     Dosage: UNK

REACTIONS (1)
  - NO ADVERSE EVENT [None]
